FAERS Safety Report 5294592-0 (Version None)
Quarter: 2007Q2

REPORT INFORMATION
  Report Type: 
  Country: None (occurrence: None)
  Receive Date: 20070412
  Receipt Date: 20070406
  Transmission Date: 20071010
  Serious: Yes (Hospitalization, Other)
  Sender: FDA-Public Use
  Company Number: US-PURDUE-USA_2007_0026985

PATIENT
  Age: 27 Year
  Sex: Female

DRUGS (5)
  1. MORPHINE SULFATE [Suspect]
     Indication: DIABETIC NEUROPATHY
     Dosage: 30 MG, QID
     Dates: start: 20070327, end: 20070331
  2. ALBUTEROL [Concomitant]
     Indication: SMOKER
  3. NEURONTIN [Concomitant]
     Indication: NEURALGIA
  4. INSULIN [Concomitant]
     Indication: DIABETES MELLITUS INSULIN-DEPENDENT
     Route: 058
  5. ALCOHOL [Concomitant]
     Indication: ALCOHOL USE

REACTIONS (5)
  - DRUG INEFFECTIVE [None]
  - IRRITABILITY [None]
  - OVERDOSE [None]
  - PAIN [None]
  - RENAL FAILURE [None]
